FAERS Safety Report 11813895 (Version 1)
Quarter: 2015Q4

REPORT INFORMATION
  Report Type: Spontaneous
  Country: US (occurrence: US)
  Receive Date: 20151209
  Receipt Date: 20151209
  Transmission Date: 20160305
  Serious: No
  Sender: FDA-Public Use
  Company Number: US-GLAXOSMITHKLINE-US2015167277

PATIENT
  Sex: Male

DRUGS (1)
  1. INCRUSE ELLIPTA [Suspect]
     Active Substance: UMECLIDINIUM BROMIDE
     Indication: WHEEZING
     Dosage: UNK

REACTIONS (5)
  - Device use error [Unknown]
  - Product use issue [Unknown]
  - Medication error [Unknown]
  - Off label use [Unknown]
  - Drug dose omission [Unknown]
